FAERS Safety Report 4725561-4 (Version None)
Quarter: 2005Q3

REPORT INFORMATION
  Report Type: 
  Country: None (occurrence: None)
  Receive Date: 20050727
  Receipt Date: 20050704
  Transmission Date: 20060218
  Serious: Yes (Hospitalization)
  Sender: FDA-Public Use
  Company Number: JP-BRACCO-BRO-008780

PATIENT
  Sex: Female
  Weight: 58 kg

DRUGS (7)
  1. IOPAMIDOL [Suspect]
     Dosage: 1.5 ML/SEC
     Route: 042
     Dates: start: 20050623, end: 20050623
  2. MUCOSOLVAN [Suspect]
     Indication: COUGH
     Route: 048
     Dates: start: 20050623, end: 20050623
  3. SELOKEN                            /00376902/ [Suspect]
     Route: 048
     Dates: start: 20050618, end: 20050623
  4. RENIVACE [Concomitant]
     Route: 050
     Dates: start: 20050610, end: 20050628
  5. DIOVAN                             /01319601/ [Concomitant]
     Route: 050
     Dates: start: 20050606
  6. NORVASC                            /00972401/ [Concomitant]
     Route: 050
     Dates: start: 20050607
  7. CARDENALIN [Concomitant]
     Route: 050
     Dates: start: 20050620

REACTIONS (7)
  - BACK PAIN [None]
  - EOSINOPHIL COUNT INCREASED [None]
  - HYPERSENSITIVITY [None]
  - INTERSTITIAL LUNG DISEASE [None]
  - PYREXIA [None]
  - RASH [None]
  - RASH ERYTHEMATOUS [None]
